FAERS Safety Report 6682653-0 (Version None)
Quarter: 2010Q2

REPORT INFORMATION
  Report Type: 
  Country: None (occurrence: None)
  Receive Date: 20100415
  Receipt Date: 20100408
  Transmission Date: 20101027
  Serious: Yes (Death, Hospitalization)
  Sender: FDA-Public Use
  Company Number: US-BRISTOL-MYERS SQUIBB COMPANY-15048184

PATIENT
  Age: 73 Year
  Sex: Female
  Weight: 77 kg

DRUGS (16)
  1. DASATINIB [Suspect]
     Indication: ENDOMETRIAL CANCER
     Route: 048
     Dates: start: 20100216
  2. AVASTIN [Suspect]
     Indication: ENDOMETRIAL CANCER
     Dates: start: 20100216, end: 20100316
  3. OXALIPLATIN [Suspect]
     Indication: ENDOMETRIAL CANCER
     Route: 042
     Dates: start: 20100216, end: 20100316
  4. XELODA [Suspect]
     Indication: ENDOMETRIAL CANCER
     Dosage: 850MG/M2 BID X14 DAYS
     Route: 048
     Dates: start: 20100216
  5. METFORMIN HCL [Concomitant]
  6. LISINOPRIL [Concomitant]
  7. LANTUS [Concomitant]
     Dosage: 1 DF - 70 U
     Route: 058
  8. HYDROCHLOROTHIAZIDE [Concomitant]
  9. NIFEDIPINE [Concomitant]
  10. VYTORIN [Concomitant]
     Dosage: 1 DF - 10/20 MG
  11. ASPIRIN [Concomitant]
  12. ZOFRAN [Concomitant]
  13. COMPAZINE [Concomitant]
     Dosage: Q6 HRS
  14. ATIVAN [Concomitant]
  15. DECADRON [Concomitant]
     Route: 048
  16. IMODIUM [Concomitant]
     Dosage: 2 DF - 2 TABS Q 6 HRS-MAX 8 TABS /24 HRS

REACTIONS (8)
  - COAGULOPATHY [None]
  - DEHYDRATION [None]
  - DIARRHOEA [None]
  - ESCHERICHIA BACTERAEMIA [None]
  - GASTROINTESTINAL OBSTRUCTION [None]
  - GASTROINTESTINAL PERFORATION [None]
  - INTESTINAL ISCHAEMIA [None]
  - MALIGNANT NEOPLASM PROGRESSION [None]
